FAERS Safety Report 5662912-0 (Version None)
Quarter: 2008Q1

REPORT INFORMATION
  Report Type: 
  Country: None (occurrence: None)
  Receive Date: 20080307
  Receipt Date: 20080226
  Transmission Date: 20080703
  Serious: Yes (Hospitalization)
  Sender: FDA-Public Use
  Company Number: 2008BI003216

PATIENT
  Age: 53 Year
  Sex: Female

DRUGS (7)
  1. TYSABRI [Suspect]
     Indication: MULTIPLE SCLEROSIS
     Dosage: 300 MG; QM; IV
     Route: 042
     Dates: start: 20071001
  2. AMANTADINE HCL [Concomitant]
  3. SOTALOL [Concomitant]
  4. ASPIRIN [Concomitant]
  5. FOSAMAX [Concomitant]
  6. DIAZEPAM [Concomitant]
  7. CLARITIN [Concomitant]

REACTIONS (2)
  - DIVERTICULAR PERFORATION [None]
  - PERIDIVERTICULAR ABSCESS [None]
